FAERS Safety Report 8683161 (Version 4)
Quarter: 2013Q4

REPORT INFORMATION
  Report Type: Spontaneous
  Country: US (occurrence: US)
  Receive Date: 20120726
  Receipt Date: 20131108
  Transmission Date: 20140711
  Serious: Yes (Hospitalization)
  Sender: FDA-Public Use
  Company Number: US-009507513-2012SP036808

PATIENT
  Age: 72 Year
  Sex: Female

DRUGS (1)
  1. ASMANEX TWISTHALER [Suspect]
     Dosage: TWO INHALATIONS ONCE DAILY
     Route: 055
     Dates: start: 201201

REACTIONS (7)
  - Chest pain [Recovered/Resolved]
  - Palpitations [Recovered/Resolved]
  - Dyspnoea [Recovered/Resolved]
  - Syncope [Unknown]
  - Oxygen saturation decreased [Unknown]
  - Skin mass [Recovered/Resolved]
  - Drug dose omission [Not Recovered/Not Resolved]
